FAERS Safety Report 4513042-2 (Version None)
Quarter: 2004Q4

REPORT INFORMATION
  Report Type: 
  Country: None (occurrence: None)
  Receive Date: 20040928
  Receipt Date: 20040714
  Transmission Date: 20050328
  Serious: No
  Sender: FDA-Public Use
  Company Number: 04P-163-0266948-00

PATIENT
  Age: 71 Year
  Sex: Male
  Weight: 84.8226 kg

DRUGS (12)
  1. HUMIRA [Suspect]
     Indication: RHEUMATOID ARTHRITIS
     Dosage: SEE IMAGE, SUBCUTANEOUS
     Route: 058
     Dates: start: 20030101, end: 20040101
  2. HUMIRA [Suspect]
     Indication: RHEUMATOID ARTHRITIS
     Dosage: SEE IMAGE, SUBCUTANEOUS
     Route: 058
     Dates: start: 20040101
  3. TERAZOSIN HYDROCHLORIDE [Concomitant]
  4. AMLODIPINE BESYLATE [Concomitant]
  5. PRINZIDE [Concomitant]
  6. ROFECOXIB [Concomitant]
  7. METHOTREXATE [Concomitant]
  8. PARACETAMOL [Concomitant]
  9. MULTIVITAMIN [Concomitant]
  10. FOLIC ACID [Concomitant]
  11. LINSEED OIL [Concomitant]
  12. GLUCOSAMINE CHONDRITIN + MSN [Concomitant]

REACTIONS (2)
  - AGEUSIA [None]
  - HYPOAESTHESIA [None]
